FAERS Safety Report 8590066-X (Version None)
Quarter: 2012Q3

REPORT INFORMATION
  Report Type: 
  Country: None (occurrence: None)
  Receive Date: 20120813
  Receipt Date: 20120808
  Transmission Date: 20120928
  Serious: Yes (Other)
  Sender: FDA-Public Use
  Company Number: US-009507513-1008USA00024

PATIENT

DRUGS (3)
  1. SINGULAIR [Suspect]
     Indication: ASTHMA
     Dosage: UNK MG, UNK
     Route: 048
  2. SINGULAIR [Suspect]
     Indication: BRONCHITIS
     Dosage: 5 MG, UNK
     Route: 048
     Dates: start: 20080101, end: 20100705
  3. VITAMINS (UNSPECIFIED) [Concomitant]

REACTIONS (7)
  - CRYING [None]
  - DEPRESSION [None]
  - HALLUCINATION [None]
  - ABDOMINAL PAIN UPPER [None]
  - ABNORMAL DREAMS [None]
  - NIGHTMARE [None]
  - SUICIDAL IDEATION [None]
